FAERS Safety Report 6097108-4 (Version None)
Quarter: 2009Q1

REPORT INFORMATION
  Report Type: 
  Country: None (occurrence: None)
  Receive Date: 20090225
  Receipt Date: 20090211
  Transmission Date: 20090719
  Serious: Yes (Other)
  Sender: FDA-Public Use
  Company Number: 8043273

PATIENT
  Age: 14 Year
  Sex: Male
  Weight: 91.3 kg

DRUGS (2)
  1. LEVETIRACETAM [Suspect]
     Indication: EPILEPSY
     Dosage: 1000 MG 2/D PO
     Route: 048
     Dates: start: 20080901, end: 20081230
  2. CLOBAZAM [Concomitant]

REACTIONS (1)
  - THROMBOCYTOPENIA [None]
